FAERS Safety Report 10231510 (Version 2)
Quarter: 2014Q2

REPORT INFORMATION
  Report Type: Spontaneous
  Country: US (occurrence: US)
  Receive Date: 20140611
  Receipt Date: 20140611
  Transmission Date: 20141212
  Serious: No
  Sender: FDA-Public Use
  Company Number: US-MYLANLABS-2013S1013813

PATIENT
  Age: 69 Year
  Sex: Female
  Weight: 49.9 kg

DRUGS (1)
  1. VALACYCLOVIR TABLETS [Suspect]
     Indication: GENITAL HERPES
     Route: 048
     Dates: start: 201301, end: 201301

REACTIONS (2)
  - Therapeutic response delayed [Recovered/Resolved]
  - Genital herpes [Recovered/Resolved]
